FAERS Safety Report 6124466-4 (Version None)
Quarter: 2009Q1

REPORT INFORMATION
  Report Type: 
  Country: None (occurrence: None)
  Receive Date: 20090317
  Receipt Date: 20090317
  Transmission Date: 20090719
  Serious: No
  Sender: FDA-Public Use
  Company Number: None

PATIENT
  Sex: Female
  Weight: 50.91 kg

DRUGS (2)
  1. ACTONEL [Suspect]
     Dosage: 35MG TABLET 35 MG QWEEK ORAL
     Route: 048
     Dates: start: 20070723, end: 20090316
  2. CALCIUM+D (CALCIUM CARBONATE)/VITAMIN D [Concomitant]

REACTIONS (1)
  - BONE PAIN [None]
